FAERS Safety Report 7193050-6 (Version None)
Quarter: 2010Q4

REPORT INFORMATION
  Report Type: 
  Country: None (occurrence: None)
  Receive Date: 20101223
  Receipt Date: 20101216
  Transmission Date: 20110411
  Serious: Yes (Other)
  Sender: FDA-Public Use
  Company Number: US-MERCK-0802USA03899

PATIENT
  Age: 67 Year
  Sex: Male

DRUGS (14)
  1. FOSAMAX [Suspect]
     Indication: OSTEOPOROSIS
     Route: 048
     Dates: start: 19990101, end: 20010101
  2. FOSAMAX [Suspect]
     Route: 048
     Dates: start: 19990101, end: 20010101
  3. FOSAMAX [Suspect]
     Route: 048
     Dates: start: 19980101, end: 20070101
  4. FOSAMAX [Suspect]
     Route: 048
     Dates: start: 20090401
  5. FOSAMAX [Suspect]
     Route: 048
     Dates: start: 20060717, end: 20100825
  6. FOSAMAX [Suspect]
     Indication: OSTEOPENIA
     Route: 048
     Dates: start: 19990101, end: 20010101
  7. FOSAMAX [Suspect]
     Route: 048
     Dates: start: 19990101, end: 20010101
  8. FOSAMAX [Suspect]
     Route: 048
     Dates: start: 19980101, end: 20070101
  9. FOSAMAX [Suspect]
     Route: 048
     Dates: start: 20090401
  10. FOSAMAX [Suspect]
     Route: 048
     Dates: start: 20060717, end: 20100825
  11. AVAPRO [Concomitant]
     Indication: HYPERTENSION
     Route: 065
     Dates: start: 19980101
  12. FOSAMAX PLUS D [Suspect]
     Indication: OSTEOPOROSIS
     Route: 048
     Dates: start: 20080328
  13. FOSAMAX PLUS D [Suspect]
     Route: 048
  14. ALENDRONATE SODIUM [Suspect]
     Route: 048
     Dates: start: 20060717, end: 20100825

REACTIONS (23)
  - BONE DENSITY DECREASED [None]
  - COUGH [None]
  - DYSPNOEA EXERTIONAL [None]
  - EAR DISORDER [None]
  - FATIGUE [None]
  - FOOT FRACTURE [None]
  - FRACTURE [None]
  - GYNAECOMASTIA [None]
  - HYPERCALCAEMIA [None]
  - INAPPROPRIATE SCHEDULE OF DRUG ADMINISTRATION [None]
  - IRON DEFICIENCY ANAEMIA [None]
  - MUSCULOSKELETAL PAIN [None]
  - NEOPLASM MALIGNANT [None]
  - NEOPLASM PROSTATE [None]
  - OSTEOARTHRITIS [None]
  - OSTEONECROSIS OF JAW [None]
  - OVERDOSE [None]
  - PROSTATE EXAMINATION ABNORMAL [None]
  - RECTAL HAEMORRHAGE [None]
  - SINUS CONGESTION [None]
  - TOOTH DISORDER [None]
  - TRAUMATIC FRACTURE [None]
  - VITAMIN D DECREASED [None]
